FAERS Safety Report 6986911-1 (Version None)
Quarter: 2010Q3

REPORT INFORMATION
  Report Type: 
  Country: None (occurrence: None)
  Receive Date: 20100915
  Receipt Date: 20090817
  Transmission Date: 20110219
  Serious: No
  Sender: FDA-Public Use
  Company Number: US-WYE-H10628409

PATIENT
  Sex: Male
  Weight: 127.12 kg

DRUGS (6)
  1. PRISTIQ [Suspect]
     Route: 048
     Dates: start: 20090501
  2. GLIPIZIDE [Concomitant]
  3. HYDROCHLOROTHIAZIDE [Concomitant]
  4. METFORMIN [Concomitant]
  5. ALLOPURINOL [Concomitant]
  6. POTASSIUM [Concomitant]

REACTIONS (3)
  - CONDITION AGGRAVATED [None]
  - DIABETES MELLITUS [None]
  - FATIGUE [None]
